FAERS Safety Report 4393621-6 (Version None)
Quarter: 2004Q3

REPORT INFORMATION
  Report Type: 
  Country: None (occurrence: None)
  Receive Date: 20040709
  Receipt Date: 20040428
  Transmission Date: 20050211
  Serious: Yes (Hospitalization)
  Sender: FDA-Public Use
  Company Number: 200411736FR

PATIENT
  Age: 91 Year
  Sex: Male
  Weight: 83 kg

DRUGS (6)
  1. IXPRIM [Suspect]
     Dosage: DOSE UNIT: UNITS
     Route: 048
     Dates: end: 20040412
  2. FUROSEMIDE [Suspect]
     Route: 048
  3. DIPROSONE [Suspect]
     Route: 003
  4. KARDEGIC [Suspect]
     Route: 048
     Dates: end: 20040407
  5. SYMBICORT [Suspect]
     Route: 045
  6. MEDIATENSYL [Suspect]
     Route: 048

REACTIONS (8)
  - ACTIVATED PARTIAL THROMBOPLASTIN TIME PROLONGED [None]
  - CONSTIPATION [None]
  - FALL [None]
  - HAEMATOMA [None]
  - PROTHROMBIN LEVEL DECREASED [None]
  - RENAL FAILURE ACUTE [None]
  - RESPIRATORY ALKALOSIS [None]
  - RHABDOMYOLYSIS [None]
